APPROVED DRUG PRODUCT: FEXOFENADINE HYDROCHLORIDE ALLERGY
Active Ingredient: FEXOFENADINE HYDROCHLORIDE
Strength: 60MG
Dosage Form/Route: TABLET;ORAL
Application: A202039 | Product #002
Applicant: AUROBINDO PHARMA LTD
Approved: Nov 19, 2014 | RLD: No | RS: No | Type: OTC